FAERS Safety Report 5557282-2 (Version None)
Quarter: 2007Q4

REPORT INFORMATION
  Report Type: 
  Country: None (occurrence: None)
  Receive Date: 20071214
  Receipt Date: 20071206
  Transmission Date: 20080405
  Serious: Yes (Life-Threatening, Hospitalization, Other)
  Sender: FDA-Public Use
  Company Number: DE-PURDUE-DEU_2007_0003902

PATIENT
  Age: 74 Year
  Sex: Male
  Weight: 65 kg

DRUGS (1)
  1. PALLADONE [Suspect]
     Indication: CANCER PAIN
     Dosage: 8 MG, DAILY
     Route: 048
     Dates: start: 20070918, end: 20070920

REACTIONS (2)
  - INCREASED UPPER AIRWAY SECRETION [None]
  - PNEUMONIA [None]
